FAERS Safety Report 23715612 (Version 1)
Quarter: 2024Q2

REPORT INFORMATION
  Report Type: Report from Study
  Country: CA (occurrence: CA)
  Receive Date: 20240408
  Receipt Date: 20240408
  Transmission Date: 20240717
  Serious: Yes (Other)
  Sender: FDA-Public Use
  Company Number: CA-CELLTRION INC.-2024CA007843

PATIENT

DRUGS (1)
  1. BEVACIZUMAB [Suspect]
     Active Substance: BEVACIZUMAB
     Indication: Glioblastoma
     Dosage: 10 MG/KG, 1 EVERY 2 WEEKS
     Route: 065

REACTIONS (3)
  - Deep vein thrombosis [Unknown]
  - Platelet count decreased [Unknown]
  - Intentional product use issue [Unknown]
